FAERS Safety Report 17069864 (Version 1)
Quarter: 2019Q4

REPORT INFORMATION
  Report Type: Spontaneous
  Country: FR (occurrence: FR)
  Receive Date: 20191125
  Receipt Date: 20191125
  Transmission Date: 20200122
  Serious: Yes (Hospitalization, Other)
  Sender: FDA-Public Use
  Company Number: FR-BRISTOL-MYERS SQUIBB COMPANY-BMS-2019-095648

PATIENT
  Age: 64 Year
  Sex: Male
  Weight: 73.9 kg

DRUGS (4)
  1. PANTOPRAZOLE [Concomitant]
     Active Substance: PANTOPRAZOLE
     Indication: DYSLIPIDAEMIA
     Dosage: 20 MILLIGRAM, QD
     Route: 048
  2. NIVOLUMAB [Suspect]
     Active Substance: NIVOLUMAB
     Indication: METASTATIC MALIGNANT MELANOMA
     Dosage: 76 MILLIGRAM, Q2WK
     Route: 042
     Dates: end: 20190808
  3. IPILIMUMAB [Suspect]
     Active Substance: IPILIMUMAB
     Indication: METASTATIC MALIGNANT MELANOMA
     Dosage: 228 MILLIGRAM, Q2WK
     Route: 042
     Dates: end: 20190808
  4. FENOFIBRATE. [Concomitant]
     Active Substance: FENOFIBRATE
     Indication: DYSLIPIDAEMIA
     Route: 048

REACTIONS (6)
  - Oral hairy leukoplakia [Recovering/Resolving]
  - Off label use [Unknown]
  - Colitis [Recovered/Resolved]
  - Hyperthyroidism [Recovered/Resolved]
  - Parotitis [Recovered/Resolved]
  - Vitiligo [Not Recovered/Not Resolved]

NARRATIVE: CASE EVENT DATE: 2019
